FAERS Safety Report 11232365 (Version 1)
Quarter: 2015Q3

REPORT INFORMATION
  Report Type: Spontaneous
  Country: DE (occurrence: DE)
  Receive Date: 20150701
  Receipt Date: 20150701
  Transmission Date: 20151125
  Serious: Yes (Other)
  Sender: FDA-Public Use
  Company Number: GXKR2015DE003089

PATIENT
  Sex: Female

DRUGS (4)
  1. ESTRAMON [Suspect]
     Active Substance: ESTRADIOL
     Indication: MENOPAUSAL SYMPTOMS
     Route: 062
  2. FAMENITA [Suspect]
     Active Substance: PROGESTERONE
     Indication: MENOPAUSAL SYMPTOMS
     Dosage: 100 MG, QHS
     Route: 048
  3. CORTISON [Suspect]
     Active Substance: CORTISONE ACETATE
     Indication: SKIN LESION
     Route: 065
  4. CORTISON [Suspect]
     Active Substance: CORTISONE ACETATE
     Indication: SKIN LESION
     Dosage: 2X DAILY
     Route: 061
     Dates: start: 201409

REACTIONS (5)
  - Hyperglycaemia [Unknown]
  - Bronchitis [Unknown]
  - Vaginal inflammation [Unknown]
  - Metrorrhagia [Not Recovered/Not Resolved]
  - Skin lesion [Unknown]

NARRATIVE: CASE EVENT DATE: 20141123
